FAERS Safety Report 10081924 (Version 2)
Quarter: 2014Q2

REPORT INFORMATION
  Report Type: Report from Study
  Country: GB (occurrence: GB)
  Receive Date: 20140416
  Receipt Date: 20140516
  Transmission Date: 20141212
  Serious: Yes (Death, Hospitalization, Disabling)
  Sender: FDA-Public Use
  Company Number: GB-GLAXOSMITHKLINE-B0982617A

PATIENT
  Sex: Male
  Weight: 82.7 kg

DRUGS (7)
  1. PAZOPANIB [Suspect]
     Indication: RENAL CELL CARCINOMA
     Dosage: 400MG PER DAY
     Route: 048
     Dates: start: 20140227
  2. MORPHINE SULFATE [Concomitant]
     Indication: ANALGESIC THERAPY
     Dates: start: 201403
  3. GABAPENTIN [Concomitant]
     Indication: ANALGESIC THERAPY
  4. DEXAMETHASONE [Concomitant]
     Indication: METASTATIC NEOPLASM
     Dates: start: 201401
  5. ASPIRIN [Concomitant]
     Indication: CORONARY ARTERY STENOSIS
  6. BISOPROLOL [Concomitant]
     Indication: CORONARY ARTERY STENOSIS
  7. MONOMAX SR [Concomitant]
     Indication: CORONARY ARTERY STENOSIS

REACTIONS (3)
  - Muscular weakness [Unknown]
  - Faecal incontinence [Unknown]
  - Death [Fatal]
